FAERS Safety Report 6414432-3 (Version None)
Quarter: 2009Q4

REPORT INFORMATION
  Report Type: 
  Country: None (occurrence: None)
  Receive Date: 20091026
  Receipt Date: 20091014
  Transmission Date: 20100525
  Serious: Yes (Hospitalization)
  Sender: FDA-Public Use
  Company Number: PHEH2009US11185

PATIENT
  Sex: Female

DRUGS (1)
  1. EXJADE [Suspect]
     Dosage: 1500 MG, QD
     Route: 048
     Dates: start: 20080905, end: 20090821

REACTIONS (4)
  - CONSTIPATION [None]
  - DEAFNESS [None]
  - DIARRHOEA [None]
  - VISUAL IMPAIRMENT [None]
